FAERS Safety Report 26153867 (Version 1)
Quarter: 2025Q4

REPORT INFORMATION
  Report Type: Spontaneous
  Country: EU (occurrence: EU)
  Receive Date: 20251214
  Receipt Date: 20251214
  Transmission Date: 20260117
  Serious: Yes (Other)
  Sender: BAXTER
  Company Number: None

PATIENT
  Age: 62 Year
  Sex: Female
  Weight: 72.1 kg

DRUGS (4)
  1. CYCLOPHOSPHAMIDE [Suspect]
     Active Substance: CYCLOPHOSPHAMIDE
     Indication: Non-Hodgkin^s lymphoma
     Dosage: 1313 MG, 1 (CYCLICAL), 1ST CYCLE 21/08/2025 - 1313 MG (750.29 MG/M^2); LAST 4TH CYCLE 27/10/2025
     Route: 042
     Dates: start: 20250821, end: 20251027
  2. DOXORUBICIN [Suspect]
     Active Substance: DOXORUBICIN
     Indication: Non-Hodgkin^s lymphoma
     Dosage: 88 MG, 1 (CYCLICAL), 1ST CYCLE 21/08/2025 - 88 MG (50.29 MG/M^2); LAST 4TH CYCLE 27/10/2025
     Route: 042
     Dates: start: 20250821, end: 20251027
  3. ADCETRIS [Suspect]
     Active Substance: BRENTUXIMAB VEDOTIN
     Indication: Non-Hodgkin^s lymphoma
     Dosage: 125 MG, 1 (CYCLICAL), 1ST CYCLE 21/08/2025 - 125.5 MG VIAL (1.8 MG/KG); LAST 4TH CYCLE 27/10/2025
     Route: 042
     Dates: start: 20250821, end: 20251027
  4. PREDNISONE [Concomitant]
     Active Substance: PREDNISONE
     Indication: Non-Hodgkin^s lymphoma
     Dosage: 100 MG, 1 (CYCLICAL), 1ST CYCLE 21/08/2025 - 100 MG (57.14 MG/M^2); LAST 4TH CYCLE 27/10/2025
     Route: 048
     Dates: start: 20250821, end: 20251027

REACTIONS (2)
  - Hemihypoaesthesia [Recovering/Resolving]
  - Hemiparaesthesia [Recovering/Resolving]

NARRATIVE: CASE EVENT DATE: 20251031
